FAERS Safety Report 4610132-0 (Version None)
Quarter: 2005Q1

REPORT INFORMATION
  Report Type: 
  Country: None (occurrence: None)
  Receive Date: 20050316
  Receipt Date: 20050304
  Transmission Date: 20050727
  Serious: Yes (Hospitalization, Other)
  Sender: FDA-Public Use
  Company Number: JP-JNJFOC-20041204782

PATIENT
  Sex: Male

DRUGS (7)
  1. RISPERDAL [Suspect]
     Indication: AUTISM
     Route: 049
     Dates: start: 20020702, end: 20041209
  2. PIMOZIDE [Suspect]
     Indication: AUTISM
     Dates: start: 20020702, end: 20041209
  3. BIPERIDEN HYDROCHLORIDE TAB [Suspect]
     Indication: AUTISM
     Route: 049
     Dates: start: 20020702, end: 20041209
  4. CLARITHROMYCIN [Concomitant]
     Indication: BRONCHITIS
  5. CHLORPHENIRAMINE MALEATE [Concomitant]
     Indication: BRONCHITIS
  6. BROMHEXINE HYDROCHLORIDE [Concomitant]
     Indication: BRONCHITIS
  7. PROCETEROL HYDROCHLORIDE [Concomitant]
     Indication: BRONCHITIS

REACTIONS (2)
  - BRONCHITIS [None]
  - HEPATITIS ACUTE [None]
